FAERS Safety Report 9859773 (Version 2)
Quarter: 2014Q1

REPORT INFORMATION
  Report Type: Report from Study
  Country: PL (occurrence: PL)
  Receive Date: 20140131
  Receipt Date: 20140213
  Transmission Date: 20141002
  Serious: Yes (Other)
  Sender: FDA-Public Use
  Company Number: PL-SA-2014SA004597

PATIENT
  Age: 30 Year
  Sex: Female
  Weight: 64 kg

DRUGS (11)
  1. TERIFLUNOMIDE [Suspect]
     Indication: MULTIPLE SCLEROSIS RELAPSE
     Route: 048
     Dates: end: 20131114
  2. VASOSAN [Concomitant]
     Indication: DRUG DETOXIFICATION
     Route: 065
     Dates: start: 20131207, end: 20131214
  3. VINPOCETINE [Concomitant]
     Route: 048
     Dates: start: 20100204
  4. DITROPAN [Concomitant]
     Route: 048
     Dates: start: 20101015
  5. CEFUROXIME [Concomitant]
     Route: 048
     Dates: start: 20110222
  6. ZYRTEC [Concomitant]
     Route: 048
     Dates: start: 20110222
  7. MUCOSOLVAN [Concomitant]
     Route: 048
     Dates: start: 20110222
  8. BETAMETHASONE/GENTAMICIN [Concomitant]
     Route: 061
     Dates: start: 20110402
  9. TORVACARD [Concomitant]
     Route: 048
     Dates: start: 20130221
  10. YAZ [Concomitant]
     Dosage: DOSE:1 UNIT(S)
     Route: 048
     Dates: start: 20100808
  11. KETONAL [Concomitant]
     Route: 030
     Dates: start: 20121211

REACTIONS (1)
  - Lipase increased [Not Recovered/Not Resolved]
